FAERS Safety Report 17588077 (Version 3)
Quarter: 2020Q3

REPORT INFORMATION
  Report Type: Report from Study
  Country: US (occurrence: US)
  Receive Date: 20200326
  Receipt Date: 20200709
  Transmission Date: 20201102
  Serious: No
  Sender: FDA-Public Use
  Company Number: NVSC2020US077787

PATIENT
  Age: 20 Year
  Sex: Male
  Weight: 83.9 kg

DRUGS (2)
  1. ILARIS [Suspect]
     Active Substance: CANAKINUMAB
     Indication: RHEUMATOID ARTHRITIS
     Dosage: 300 MG, Q4W
     Route: 058
     Dates: start: 20170104
  2. ILARIS [Suspect]
     Active Substance: CANAKINUMAB
     Indication: PAIN
     Dosage: 300 MG, Q3MO
     Route: 058

REACTIONS (2)
  - Rhinorrhoea [Recovered/Resolved]
  - Arthralgia [Unknown]

NARRATIVE: CASE EVENT DATE: 20200311
